FAERS Safety Report 9091926 (Version 1)
Quarter: 2013Q1

REPORT INFORMATION
  Report Type: Report from Study
  Country: US (occurrence: US)
  Receive Date: 20130218
  Receipt Date: 20130218
  Transmission Date: 20140127
  Serious: No
  Sender: FDA-Public Use
  Company Number: US-ABBOTT-12P-163-1025773-00

PATIENT
  Sex: Male
  Weight: 93.07 kg

DRUGS (4)
  1. SIMCOR 1000/20 [Suspect]
     Indication: LOW DENSITY LIPOPROTEIN DECREASED
     Dosage: EVERY MORNING
     Dates: start: 201112
  2. SIMCOR 1000/20 [Suspect]
     Indication: BLOOD TRIGLYCERIDES INCREASED
  3. BABY ASPIRIN [Concomitant]
     Indication: PRODUCT USED FOR UNKNOWN INDICATION
  4. METFORMIN [Concomitant]
     Indication: PRODUCT USED FOR UNKNOWN INDICATION

REACTIONS (4)
  - Flushing [Recovered/Resolved]
  - Skin burning sensation [Recovered/Resolved]
  - Pruritus [Recovered/Resolved]
  - Erythema [Recovered/Resolved]
